FAERS Safety Report 9393215 (Version 6)
Quarter: 2014Q2

REPORT INFORMATION
  Report Type: Spontaneous
  Country: US (occurrence: US)
  Receive Date: 20130710
  Receipt Date: 20140422
  Transmission Date: 20141212
  Serious: Yes (Hospitalization, Other)
  Sender: FDA-Public Use
  Company Number: US-009507513-1307USA004475

PATIENT
  Sex: Female

DRUGS (3)
  1. FOSAMAX [Suspect]
     Indication: OSTEOPENIA
     Dosage: 70 MG, QW
     Route: 048
     Dates: end: 200806
  2. FOSAMAX [Suspect]
     Dosage: UNK
     Route: 048
  3. FOSAMAX PLUS D [Suspect]
     Indication: OSTEOPENIA
     Dosage: 70 MG, QW
     Route: 048
     Dates: start: 200806, end: 201007

REACTIONS (28)
  - Femur fracture [Unknown]
  - Femur fracture [Unknown]
  - Intramedullary rod insertion [Unknown]
  - Hip fracture [Unknown]
  - Hip arthroplasty [Unknown]
  - Coronary artery disease [Unknown]
  - Coronary arterial stent insertion [Unknown]
  - Hypercholesterolaemia [Unknown]
  - Hypertension [Unknown]
  - Fall [Unknown]
  - Lip injury [Unknown]
  - Poor quality sleep [Unknown]
  - Nerve injury [Unknown]
  - Coronary arterial stent insertion [Unknown]
  - Fall [Unknown]
  - Osteoporosis [Unknown]
  - Pericardial effusion [Unknown]
  - Neuralgia [Unknown]
  - Dyspnoea [Unknown]
  - Goitre [Unknown]
  - Weight increased [Unknown]
  - Coronary arterial stent insertion [Unknown]
  - Osteoarthritis [Unknown]
  - Atrophic vulvovaginitis [Unknown]
  - Urinary retention [Unknown]
  - Reflux laryngitis [Unknown]
  - Neck pain [Recovering/Resolving]
  - Pharyngeal ulceration [Unknown]
